FAERS Safety Report 9504828 (Version 1)
Quarter: 2013Q3

REPORT INFORMATION
  Report Type: Spontaneous
  Country: GB (occurrence: GB)
  Receive Date: 20130906
  Receipt Date: 20130906
  Transmission Date: 20140515
  Serious: Yes (Disabling)
  Sender: FDA-Public Use
  Company Number: GB-TEVA-429720ISR

PATIENT
  Age: 63 Year
  Sex: Male
  Weight: 107.95 kg

DRUGS (15)
  1. DOXAZOSIN [Suspect]
     Dates: start: 20130424
  2. GABAPENTIN [Concomitant]
     Dates: start: 20130424
  3. FUROSEMIDE [Concomitant]
     Dates: start: 20130424
  4. ALLOPURINOL [Concomitant]
     Dates: start: 20130424
  5. VITAMIN B SUBSTANCES [Concomitant]
     Dates: start: 20130503, end: 20130531
  6. VITAMIN B SUBSTANCES [Concomitant]
     Dates: start: 20130702, end: 20130730
  7. THIAMINE [Concomitant]
     Dates: start: 20130503, end: 20130531
  8. THIAMINE [Concomitant]
     Dates: start: 20130702, end: 20130730
  9. FLUCLOXACILLIN [Concomitant]
     Dates: start: 20130606, end: 20130613
  10. SPIRONOLACTONE [Concomitant]
     Dates: start: 20130621
  11. CO-CODAMOL [Concomitant]
     Dates: start: 20130702
  12. IBUPROFEN [Concomitant]
     Dates: start: 20130702, end: 20130712
  13. ZOPICLONE [Concomitant]
     Dates: start: 20130718
  14. SILDENAFIL [Concomitant]
     Dates: start: 20130730, end: 20130806
  15. CETRABEN [Concomitant]

REACTIONS (1)
  - Joint swelling [Recovering/Resolving]
